FAERS Safety Report 4369123-X (Version None)
Quarter: 2004Q2

REPORT INFORMATION
  Report Type: 
  Country: None (occurrence: None)
  Receive Date: 20040527
  Receipt Date: 20040514
  Transmission Date: 20050107
  Serious: Yes (Other)
  Sender: FDA-Public Use
  Company Number: 2004032848

PATIENT
  Sex: Female
  Weight: 66.6788 kg

DRUGS (3)
  1. NEURONTIN [Suspect]
     Indication: DEPRESSION
  2. NEURONTIN [Suspect]
     Indication: PAIN
  3. SIMVASTATIN [Concomitant]

REACTIONS (14)
  - ABDOMINAL PAIN UPPER [None]
  - ASTHENIA [None]
  - DEPRESSION [None]
  - DIARRHOEA [None]
  - FEELING ABNORMAL [None]
  - GASTRIC DISORDER [None]
  - GASTROINTESTINAL PAIN [None]
  - INTESTINAL SPASM [None]
  - MARKEDLY REDUCED DIETARY INTAKE [None]
  - MUSCLE SPASMS [None]
  - NAUSEA [None]
  - OROPHARYNGEAL SPASM [None]
  - SUICIDAL IDEATION [None]
  - VOMITING [None]
